FAERS Safety Report 26091611 (Version 1)
Quarter: 2025Q4

REPORT INFORMATION
  Report Type: Spontaneous
  Country: CN (occurrence: CN)
  Receive Date: 20251126
  Receipt Date: 20251126
  Transmission Date: 20260117
  Serious: Yes (Other)
  Sender: ROCHE
  Company Number: CN-ROCHE-10000440276

PATIENT
  Age: 67 Year
  Sex: Female

DRUGS (3)
  1. TOCILIZUMAB [Suspect]
     Active Substance: TOCILIZUMAB
     Indication: Neoplasm malignant
     Route: 042
     Dates: start: 20251104, end: 20251104
  2. TALQUETAMAB [Suspect]
     Active Substance: TALQUETAMAB
     Indication: Neoplasm malignant
     Route: 058
     Dates: start: 20251102, end: 20251102
  3. SULFAMETHOXAZOLE [Concomitant]
     Active Substance: SULFAMETHOXAZOLE
     Indication: Anti-infective therapy

REACTIONS (3)
  - Hyperpyrexia [Recovering/Resolving]
  - Pain in extremity [Recovering/Resolving]
  - Off label use [Unknown]

NARRATIVE: CASE EVENT DATE: 20251104
